FAERS Safety Report 14879629 (Version 2)
Quarter: 2019Q1

REPORT INFORMATION
  Report Type: Spontaneous
  Country: JP (occurrence: JP)
  Receive Date: 20180511
  Receipt Date: 20190314
  Transmission Date: 20190417
  Serious: Yes (Death)
  Sender: FDA-Public Use
  Company Number: JP-ROCHE-2122008

PATIENT
  Age: 47 Year
  Sex: Male

DRUGS (10)
  1. RITUXIMAB. [Suspect]
     Active Substance: RITUXIMAB
     Indication: B-CELL LYMPHOMA
     Route: 065
  2. FLUDARABINE [Concomitant]
     Active Substance: FLUDARABINE PHOSPHATE
  3. PREDNISOLONE. [Concomitant]
     Active Substance: PREDNISOLONE
  4. DEXAMETHASONE. [Concomitant]
     Active Substance: DEXAMETHASONE
     Dosage: 33 MG/BODY DAYS 1-3
     Route: 065
  5. VINCRISTINE [Concomitant]
     Active Substance: VINCRISTINE
  6. ETOPOSIDE. [Concomitant]
     Active Substance: ETOPOSIDE
  7. CYCLOPHOSPHAMIDE. [Concomitant]
     Active Substance: CYCLOPHOSPHAMIDE
  8. DOXORUBICIN [Concomitant]
     Active Substance: DOXORUBICIN
  9. BENDAMUSTINE [Concomitant]
     Active Substance: BENDAMUSTINE
  10. CYTARABINE. [Concomitant]
     Active Substance: CYTARABINE

REACTIONS (2)
  - Acute myeloid leukaemia [Fatal]
  - Myelodysplastic syndrome [Fatal]
